FAERS Safety Report 14578725 (Version 2)
Quarter: 2018Q1

REPORT INFORMATION
  Report Type: Report from Study
  Country: ES (occurrence: ES)
  Receive Date: 20180227
  Receipt Date: 20180316
  Transmission Date: 20180509
  Serious: Yes (Hospitalization)
  Sender: FDA-Public Use
  Company Number: ES-TEVA-2018-ES-860474

PATIENT
  Age: 90 Year
  Sex: Female

DRUGS (9)
  1. ZEBINIX (ESLICARBAZEPINE ACETATE) [Suspect]
     Active Substance: ESLICARBAZEPINE ACETATE
     Dosage: 0-0-1
     Route: 048
     Dates: start: 20170101, end: 20171031
  2. BISOPROLOL (2328A) [Concomitant]
     Active Substance: BISOPROLOL
     Route: 065
     Dates: start: 20150702
  3. CO-DIOVAN [Suspect]
     Active Substance: HYDROCHLOROTHIAZIDE\VALSARTAN
     Dosage: IN THE MORNING
     Route: 065
     Dates: start: 20150326
  4. VERSATIS 5% APOSITO ADHESIVO MEDICAMENTOSO 20 AP?SITOS [Concomitant]
     Route: 065
  5. SERC [Concomitant]
     Active Substance: BETAHISTINE HYDROCHLORIDE
     Route: 065
  6. LEXATIN 1,5 MG CAPSULAS DURAS , 30 C?PSULAS [Concomitant]
     Route: 065
     Dates: start: 20170831
  7. SINTROM [Concomitant]
     Active Substance: ACENOCOUMAROL
     Dosage: SP
     Route: 065
  8. MIRTAZAPINE. [Suspect]
     Active Substance: MIRTAZAPINE
     Dosage: ONCE DAILY, AT NIGHT
     Route: 048
     Dates: start: 20170420, end: 20171031
  9. GABAPENTIN. [Suspect]
     Active Substance: GABAPENTIN
     Route: 065
     Dates: start: 20171017, end: 20171031

REACTIONS (1)
  - Inappropriate antidiuretic hormone secretion [Recovered/Resolved]

NARRATIVE: CASE EVENT DATE: 20171031
